FAERS Safety Report 9245995 (Version 4)
Quarter: 2018Q4

REPORT INFORMATION
  Report Type: Report from Study
  Country: DE (occurrence: DE)
  Receive Date: 20130422
  Receipt Date: 20181104
  Transmission Date: 20190205
  Serious: Yes (Death, Hospitalization)
  Sender: FDA-Public Use
  Company Number: PHHO2013DE005506

PATIENT

DRUGS (5)
  1. ZOMETA [Concomitant]
     Active Substance: ZOLEDRONIC ACID
     Indication: METASTASES TO BONE
     Dosage: 4 MG, QD
     Dates: start: 20120928, end: 20130321
  2. EVEROLIMUS. [Suspect]
     Active Substance: EVEROLIMUS
     Indication: BREAST CANCER METASTATIC
     Dosage: 10 MG, QD
     Route: 048
     Dates: start: 20121126, end: 20130322
  3. EXEMESTANE. [Suspect]
     Active Substance: EXEMESTANE
     Indication: BREAST CANCER METASTATIC
     Dosage: 25 MG, QD
     Route: 048
     Dates: start: 20121126, end: 20130402
  4. BISOBETA [Concomitant]
     Indication: HYPERTENSION
     Dosage: 5 MG, QD
     Route: 065
  5. NOVALGIN (METAMIZOLE SODIUM) [Concomitant]
     Active Substance: METAMIZOLE SODIUM
     Indication: PAIN PROPHYLAXIS
     Dosage: PRN
     Route: 065
     Dates: start: 20121004

REACTIONS (2)
  - Acute hepatic failure [Fatal]
  - General physical health deterioration [Fatal]

NARRATIVE: CASE EVENT DATE: 20130402
